FAERS Safety Report 23771044 (Version 1)
Quarter: 2024Q2

REPORT INFORMATION
  Report Type: Spontaneous
  Country: US (occurrence: US)
  Receive Date: 20240423
  Receipt Date: 20240423
  Transmission Date: 20240716
  Serious: Yes (Other)
  Sender: FDA-Public Use
  Company Number: US-AUROBINDO-AUR-APL-2024-017831

PATIENT
  Age: 21 Year
  Sex: Female

DRUGS (1)
  1. CAFFEINE [Suspect]
     Active Substance: CAFFEINE
     Indication: Product used for unknown indication
     Dosage: 12 GRAM (+GT;100 UG/L SERUM CAFFEINE)
     Route: 065

REACTIONS (7)
  - Acute kidney injury [Unknown]
  - Cardiac arrest [Unknown]
  - Arrhythmia [Unknown]
  - Seizure [Unknown]
  - Compartment syndrome [Unknown]
  - Shock [Unknown]
  - Intentional overdose [Unknown]
